FAERS Safety Report 10933189 (Version 2)
Quarter: 2015Q2

REPORT INFORMATION
  Report Type: Report from Study
  Country: US (occurrence: US)
  Receive Date: 20150320
  Receipt Date: 20150622
  Transmission Date: 20150821
  Serious: No
  Sender: FDA-Public Use
  Company Number: US-ABBVIE-15P-163-1344958-00

PATIENT
  Age: 55 Year
  Sex: Female

DRUGS (2)
  1. VIEKIRA PAK [Suspect]
     Active Substance: DASABUVIR\OMBITASVIR\PARITAPREVIR\RITONAVIR
     Indication: HEPATITIS C
     Dosage: 2 PINK TAB AM, 1 BEIGE TAB PM DAILY
     Route: 048
     Dates: start: 201502, end: 201504
  2. RIBASPHERE [Concomitant]
     Active Substance: RIBAVIRIN
     Indication: PRODUCT USED FOR UNKNOWN INDICATION

REACTIONS (8)
  - Fatigue [Unknown]
  - Nasopharyngitis [Unknown]
  - Headache [Unknown]
  - Insomnia [Unknown]
  - Poor quality sleep [Unknown]
  - Muscular weakness [Not Recovered/Not Resolved]
  - Pruritus [Unknown]
  - Alopecia [Not Recovered/Not Resolved]

NARRATIVE: CASE EVENT DATE: 201502
